FAERS Safety Report 12173341 (Version 1)
Quarter: 2016Q1

REPORT INFORMATION
  Report Type: Report from Study
  Country: US (occurrence: US)
  Receive Date: 20160311
  Receipt Date: 20160311
  Transmission Date: 20160526
  Serious: Yes (Hospitalization)
  Sender: FDA-Public Use
  Company Number: US-ACTELION-A-NJ2015-112670

PATIENT
  Age: 71 Year
  Sex: Female

DRUGS (10)
  1. MACITENTAN [Suspect]
     Active Substance: MACITENTAN
     Indication: PULMONARY HYPERTENSION
     Dosage: 10 MG, QD
     Route: 048
     Dates: start: 20141023
  2. SILDENAFIL. [Concomitant]
     Active Substance: SILDENAFIL
     Dosage: 20 MG, BID
  3. PANTOPRAZOLE [Concomitant]
     Active Substance: PANTOPRAZOLE SODIUM
     Dosage: 40 MG, QD
  4. KLOR-CON [Concomitant]
     Active Substance: POTASSIUM CHLORIDE
     Dosage: 20 MCG, BID
     Dates: start: 20141118
  5. LOSARTAN AND HYDROCHLOROTHIAZIDE [Concomitant]
     Active Substance: HYDROCHLOROTHIAZIDE\LOSARTAN POTASSIUM
     Dosage: 50-12.5, QD
     Dates: start: 20141123
  6. SYMBICORT [Concomitant]
     Active Substance: BUDESONIDE\FORMOTEROL FUMARATE DIHYDRATE
     Dosage: 160/4.5 , PUFF, BID
     Route: 055
     Dates: start: 20121128
  7. OXYMETAZOLINE [Concomitant]
     Active Substance: OXYMETAZOLINE
  8. VITAMIN B COMPLEX [Concomitant]
     Active Substance: CYANOCOBALAMIN\DEXPANTHENOL\NIACINAMIDE\PYRIDOXINE HYDROCHLORIDE\RIBOFLAVIN 5^-PHOSPHATE SODIUM\THIAMINE HYDROCHLORIDE\VITAMIN B COMPLEX
     Dosage: UNK
  9. FUROSEMIDE. [Concomitant]
     Active Substance: FUROSEMIDE
     Dosage: 80 MG, BID
     Dates: start: 20141023
  10. ALBUTEROL W/IPRATROPIUM [Concomitant]
     Active Substance: ALBUTEROL\IPRATROPIUM
     Dosage: 2.5 MG?0.5 MG/3 ML, PRN
     Route: 055

REACTIONS (20)
  - Fluid retention [Unknown]
  - Generalised oedema [Unknown]
  - Blood creatinine increased [Recovered/Resolved]
  - Dyspnoea [Unknown]
  - Hypotension [Recovered/Resolved]
  - Hypertension [Unknown]
  - Oedema peripheral [Unknown]
  - Drug dose omission [Unknown]
  - Fluid overload [Unknown]
  - Acute kidney injury [Recovered/Resolved]
  - Cardiac failure congestive [Unknown]
  - Diastolic dysfunction [Recovered/Resolved]
  - Blood urea increased [Recovered/Resolved]
  - Chronic obstructive pulmonary disease [Unknown]
  - Condition aggravated [Recovered/Resolved]
  - Ascites [Unknown]
  - Mobility decreased [Unknown]
  - Pulmonary congestion [Unknown]
  - Right ventricular failure [Unknown]
  - Hypotension [Unknown]

NARRATIVE: CASE EVENT DATE: 20150121
